FAERS Safety Report 9098803 (Version 2)
Quarter: 2013Q2

REPORT INFORMATION
  Report Type: Spontaneous
  Country: FR (occurrence: FR)
  Receive Date: 20130213
  Receipt Date: 20130414
  Transmission Date: 20140414
  Serious: Yes (Other)
  Sender: FDA-Public Use
  Company Number: FR-BRISTOL-MYERS SQUIBB COMPANY-17347097

PATIENT
  Age: 51 Year
  Sex: Female

DRUGS (5)
  1. COUMADINE [Suspect]
     Indication: ARRHYTHMIA
     Route: 048
     Dates: start: 20111017, end: 20121218
  2. COUMADINE [Suspect]
     Indication: ATRIAL FIBRILLATION
     Route: 048
     Dates: start: 20111017, end: 20121218
  3. LUTERAN [Concomitant]
     Dates: start: 201202
  4. COTRIATEC [Concomitant]
     Dates: start: 201202
  5. INEXIUM [Concomitant]

REACTIONS (2)
  - Nephropathy [Not Recovered/Not Resolved]
  - Renal failure [Recovering/Resolving]
